FAERS Safety Report 13662291 (Version 1)
Quarter: 2017Q2

REPORT INFORMATION
  Report Type: Report from Study
  Country: US (occurrence: US)
  Receive Date: 20170617
  Receipt Date: 20170617
  Transmission Date: 20170830
  Serious: Yes (Death, Hospitalization)
  Sender: FDA-Public Use
  Company Number: US-TORRENT-00003102

PATIENT
  Age: 68 Year
  Sex: Female

DRUGS (2)
  1. INSULIN HUMAN [Suspect]
     Active Substance: INSULIN HUMAN
  2. BUPROPION. [Suspect]
     Active Substance: BUPROPION

REACTIONS (17)
  - Hypotension [Unknown]
  - Pulmonary oedema [Fatal]
  - Pericardial effusion [Fatal]
  - Completed suicide [Fatal]
  - Ascites [Fatal]
  - Intentional overdose [None]
  - Myocardial strain [None]
  - Toxicity to various agents [Fatal]
  - Cardiac arrest [Fatal]
  - Seizure [Unknown]
  - Pleural effusion [Fatal]
  - Bundle branch block left [None]
  - Intentional self-injury [None]
  - Overdose [Fatal]
  - Depressed level of consciousness [None]
  - Hyperdynamic left ventricle [None]
  - Accidental death [None]
